FAERS Safety Report 5400929-1 (Version None)
Quarter: 2007Q3

REPORT INFORMATION
  Report Type: 
  Country: None (occurrence: None)
  Receive Date: 20070730
  Receipt Date: 20070322
  Transmission Date: 20080115
  Serious: No
  Sender: FDA-Public Use
  Company Number: A0644259A

PATIENT
  Age: 3 Year
  Sex: Male

DRUGS (7)
  1. ZANTAC 150 [Suspect]
     Indication: DRUG USE FOR UNKNOWN INDICATION
     Dosage: 2ML TWICE PER DAY
     Route: 048
     Dates: start: 20070301, end: 20070301
  2. PREVACID [Concomitant]
  3. ZYRTEC [Concomitant]
  4. ALLERGY SHOTS [Concomitant]
  5. XOPENEX [Concomitant]
  6. PULMICORT [Concomitant]
  7. SINGULAIR [Concomitant]

REACTIONS (1)
  - RASH [None]
